FAERS Safety Report 6415791-8 (Version None)
Quarter: 2009Q4

REPORT INFORMATION
  Report Type: 
  Country: None (occurrence: None)
  Receive Date: 20091027
  Receipt Date: 20091015
  Transmission Date: 20100525
  Serious: Yes (Hospitalization, Other)
  Sender: FDA-Public Use
  Company Number: JP-PFIZER INC-2009284305

PATIENT
  Age: 95 Year

DRUGS (5)
  1. DISOPYRAMIDE AND DISOPYRAMIDE PHOSPHATE [Suspect]
     Indication: SUPRAVENTRICULAR EXTRASYSTOLES
     Dosage: 300 MG/DAILY
     Route: 048
  2. DILTIAZEM HYDROCHLORIDE [Interacting]
     Indication: HYPERTENSION
     Dosage: 90 MG, 1X/DAY
  3. PRAVASTATIN [Concomitant]
     Indication: HYPERLIPIDAEMIA
     Dosage: 5 MG, 1X/DAY
  4. OMEPRAZOLE [Concomitant]
     Indication: GASTRIC ULCER
     Dosage: 10 MG, 1X/DAY
  5. MAGNESIUM OXIDE [Concomitant]
     Indication: CONSTIPATION
     Dosage: 660 MG, 1X/DAY

REACTIONS (3)
  - DECREASED APPETITE [None]
  - HYPOGLYCAEMIA [None]
  - VOMITING [None]
